FAERS Safety Report 25939210 (Version 1)
Quarter: 2025Q4

REPORT INFORMATION
  Report Type: Spontaneous
  Country: EU (occurrence: EU)
  Receive Date: 20251020
  Receipt Date: 20251020
  Transmission Date: 20260117
  Serious: Yes (Life-Threatening, Hospitalization, Other)
  Sender: Haleon PLC
  Company Number: EU-MINISALO2-1036523

PATIENT
  Age: 48 Year
  Sex: Male
  Weight: 90 kg

DRUGS (3)
  1. IBUPROFEN [Suspect]
     Active Substance: IBUPROFEN
     Indication: Respiratory tract infection
     Route: 048
  2. AMOXICILLIN\CLAVULANIC ACID [Suspect]
     Active Substance: AMOXICILLIN\CLAVULANIC ACID
     Indication: Respiratory tract infection
     Route: 048
  3. NAPROXEN [Suspect]
     Active Substance: NAPROXEN
     Indication: Respiratory tract infection
     Route: 048

REACTIONS (1)
  - Toxic epidermal necrolysis [Recovering/Resolving]

NARRATIVE: CASE EVENT DATE: 20250326
